FAERS Safety Report 21493187 (Version 1)
Quarter: 2022Q4

REPORT INFORMATION
  Report Type: Spontaneous
  Country: US (occurrence: US)
  Receive Date: 20221021
  Receipt Date: 20221021
  Transmission Date: 20230113
  Serious: No
  Sender: FDA-Public Use
  Company Number: US-ALLERGAN-2140389US

PATIENT
  Age: 67 Year
  Sex: Female
  Weight: 59.42 kg

DRUGS (2)
  1. COMBIGAN [Suspect]
     Active Substance: BRIMONIDINE TARTRATE\TIMOLOL MALEATE
     Indication: Intraocular pressure increased
     Dosage: 2 GTT, BID
     Dates: start: 202111
  2. COMBIGAN [Suspect]
     Active Substance: BRIMONIDINE TARTRATE\TIMOLOL MALEATE
     Dosage: 2 GTT, BID

REACTIONS (4)
  - Purulent discharge [Not Recovered/Not Resolved]
  - Secretion discharge [Not Recovered/Not Resolved]
  - Hordeolum [Recovering/Resolving]
  - Dermal cyst [Recovering/Resolving]

NARRATIVE: CASE EVENT DATE: 20211101
